FAERS Safety Report 14773012 (Version 3)
Quarter: 2019Q1

REPORT INFORMATION
  Report Type: Report from Study
  Country: US (occurrence: US)
  Receive Date: 20180418
  Receipt Date: 20190108
  Transmission Date: 20190417
  Serious: No
  Sender: FDA-Public Use
  Company Number: PHEH2018US014878

PATIENT
  Sex: Male

DRUGS (2)
  1. ILARIS [Suspect]
     Active Substance: CANAKINUMAB
     Indication: FAMILIAL MEDITERRANEAN FEVER
     Dosage: 58 MG, Q4W
     Route: 058
     Dates: start: 20180523, end: 20180523
  2. ILARIS [Suspect]
     Active Substance: CANAKINUMAB
     Dosage: 56 MG, UNK
     Route: 058

REACTIONS (4)
  - Headache [Not Recovered/Not Resolved]
  - Incorrect dose administered [Unknown]
  - Familial mediterranean fever [Unknown]
  - Condition aggravated [Unknown]
